FAERS Safety Report 6696350-9 (Version None)
Quarter: 2010Q2

REPORT INFORMATION
  Report Type: 
  Country: None (occurrence: None)
  Receive Date: 20100426
  Receipt Date: 20100415
  Transmission Date: 20101027
  Serious: Yes (Death)
  Sender: FDA-Public Use
  Company Number: US-JNJFOC-20100401647

PATIENT

DRUGS (4)
  1. DOXIL [Suspect]
     Indication: MULTIPLE MYELOMA
     Route: 042
  2. VELCADE [Suspect]
     Indication: MULTIPLE MYELOMA
     Route: 065
  3. THALIDOMIDE [Suspect]
     Indication: MULTIPLE MYELOMA
     Route: 065
  4. COUMADIN [Concomitant]
     Indication: THROMBOSIS PROPHYLAXIS
     Route: 048

REACTIONS (1)
  - SEPSIS [None]
